FAERS Safety Report 9012652 (Version 2)
Quarter: 2013Q1

REPORT INFORMATION
  Report Type: Spontaneous
  Country: US (occurrence: US)
  Receive Date: 20130114
  Receipt Date: 20130205
  Transmission Date: 20140127
  Serious: Yes (Hospitalization)
  Sender: FDA-Public Use
  Company Number: US-PFIZER INC-2013015064

PATIENT
  Age: 67 Year
  Sex: Female
  Weight: 90.7 kg

DRUGS (3)
  1. LYRICA [Suspect]
     Indication: NEUROPATHY PERIPHERAL
     Dosage: 50 MG IN MORNING AND 150 MG IN NIGHT
     Route: 048
  2. CELEBREX [Suspect]
     Indication: OSTEOARTHRITIS
     Dosage: 200 MG, DAILY
     Dates: start: 2001
  3. ELAVIL [Concomitant]
     Indication: CYSTITIS INTERSTITIAL
     Dosage: 50 MG, DAILY

REACTIONS (3)
  - Arthropathy [Unknown]
  - Fall [Unknown]
  - Patella fracture [Unknown]
